FAERS Safety Report 6408878-7 (Version None)
Quarter: 2009Q4

REPORT INFORMATION
  Report Type: 
  Country: None (occurrence: None)
  Receive Date: 20091019
  Receipt Date: 20091006
  Transmission Date: 20100525
  Serious: Yes (Other)
  Sender: FDA-Public Use
  Company Number: 002006

PATIENT
  Sex: Female

DRUGS (2)
  1. NEUPRO [Suspect]
     Dosage: (8 MG 1X/24 HOURS TRANSDERMAL) ; (10 MG 1X/24 HOURS TRANSDERMAL)
     Route: 062
     Dates: start: 20071001
  2. NEUPRO [Suspect]
     Dosage: (8 MG 1X/24 HOURS TRANSDERMAL) ; (10 MG 1X/24 HOURS TRANSDERMAL)
     Route: 062
     Dates: start: 20081101

REACTIONS (1)
  - DERMATITIS CONTACT [None]
